FAERS Safety Report 24222080 (Version 3)
Quarter: 2024Q3

REPORT INFORMATION
  Report Type: Spontaneous
  Country: US (occurrence: None)
  Receive Date: 20240819
  Receipt Date: 20240913
  Transmission Date: 20241017
  Serious: No
  Sender: ASTRAZENECA
  Company Number: 2024A174361

PATIENT
  Age: 25549 Day
  Sex: Female

DRUGS (1)
  1. TEZSPIRE [Suspect]
     Active Substance: TEZEPELUMAB-EKKO
     Dosage: 210.0MG UNKNOWN
     Dates: start: 20240503

REACTIONS (3)
  - Injection site injury [Unknown]
  - Device leakage [Unknown]
  - Incorrect dose administered by device [Unknown]

NARRATIVE: CASE EVENT DATE: 20240731
